FAERS Safety Report 17265787 (Version 1)
Quarter: 2020Q1

REPORT INFORMATION
  Report Type: Spontaneous
  Country: US (occurrence: US)
  Receive Date: 20200114
  Receipt Date: 20200114
  Transmission Date: 20200409
  Serious: No
  Sender: FDA-Public Use
  Company Number: US-ASTRAZENECA-2019SF84162

PATIENT
  Age: 68 Year
  Sex: Male
  Weight: 127.9 kg

DRUGS (1)
  1. BYDUREON [Suspect]
     Active Substance: EXENATIDE
     Indication: TYPE 2 DIABETES MELLITUS
     Route: 058

REACTIONS (9)
  - Arthropathy [Unknown]
  - Wrong technique in device usage process [Unknown]
  - Respiratory tract infection [Unknown]
  - Sinusitis [Recovered/Resolved]
  - Bone disorder [Unknown]
  - Glycosylated haemoglobin abnormal [Unknown]
  - Back pain [Unknown]
  - Dysstasia [Unknown]
  - Nasal septum deviation [Unknown]

NARRATIVE: CASE EVENT DATE: 2019
